FAERS Safety Report 7915706-7 (Version None)
Quarter: 2011Q4

REPORT INFORMATION
  Report Type: 
  Country: None (occurrence: None)
  Receive Date: 20111115
  Receipt Date: 20111107
  Transmission Date: 20120403
  Serious: Yes (Life-Threatening, Hospitalization)
  Sender: FDA-Public Use
  Company Number: GB-GLAXOSMITHKLINE-B0745610A

PATIENT
  Age: 79 Year
  Sex: Female

DRUGS (14)
  1. ADCAL-D3 [Concomitant]
     Dosage: 2IUAX PER DAY
  2. PERINDOPRIL ERBUMINE [Concomitant]
     Dosage: 2MG PER DAY
     Dates: start: 20110805
  3. BENDROFLUMETHIAZIDE [Concomitant]
     Dosage: 2.5MG PER DAY
  4. OMEPRAZOLE [Concomitant]
     Dosage: 20MG PER DAY
  5. LAMOTRIGINE [Suspect]
     Indication: CONVULSION
     Dosage: 100MG PER DAY
     Route: 048
     Dates: start: 20110811, end: 20110822
  6. ASPIRIN [Concomitant]
  7. ACETAMINOPHEN [Concomitant]
  8. ACETAMINOPHEN AND CODEINE PHOSPHATE [Concomitant]
  9. PHENYTOIN [Concomitant]
     Route: 042
     Dates: start: 20110805
  10. CITALOPRAM HYDROBROMIDE [Concomitant]
     Dosage: 10MG PER DAY
  11. BISOPROLOL [Concomitant]
     Dates: start: 20110809
  12. TRAVOPROST [Concomitant]
  13. LAMOTRIGINE [Suspect]
     Dosage: 50MG PER DAY
     Route: 048
     Dates: start: 20110807, end: 20110810
  14. ZOLPIDEM [Concomitant]
     Dosage: 5MG PER DAY
     Dates: start: 20110816, end: 20110825

REACTIONS (10)
  - NEUTROPHIL COUNT DECREASED [None]
  - PLATELET COUNT DECREASED [None]
  - PALLOR [None]
  - ESCHERICHIA URINARY TRACT INFECTION [None]
  - SKIN WARM [None]
  - RASH ERYTHEMATOUS [None]
  - PYREXIA [None]
  - ESCHERICHIA SEPSIS [None]
  - NEUTROPENIC SEPSIS [None]
  - HAEMOGLOBIN DECREASED [None]
